FAERS Safety Report 25110559 (Version 1)
Quarter: 2025Q1

REPORT INFORMATION
  Report Type: Report from Study
  Country: US (occurrence: US)
  Receive Date: 20250324
  Receipt Date: 20250324
  Transmission Date: 20250408
  Serious: Yes (Hospitalization)
  Sender: ABBVIE
  Company Number: US-ABBVIE-6187496

PATIENT
  Age: 49 Year
  Sex: Male

DRUGS (1)
  1. CREON [Suspect]
     Active Substance: PANCRELIPASE AMYLASE\PANCRELIPASE LIPASE\PANCRELIPASE PROTEASE
     Indication: Product used for unknown indication
     Route: 048
     Dates: start: 20240215

REACTIONS (6)
  - Biliary tract disorder [Unknown]
  - Biliary tract disorder [Recovered/Resolved]
  - Stent placement [Unknown]
  - Pancreatic disorder [Unknown]
  - Discoloured vomit [Unknown]
  - Pain [Unknown]

NARRATIVE: CASE EVENT DATE: 20240201
